FAERS Safety Report 25081171 (Version 1)
Quarter: 2025Q1

REPORT INFORMATION
  Report Type: Spontaneous
  Country: JP (occurrence: JP)
  Receive Date: 20250315
  Receipt Date: 20250315
  Transmission Date: 20250408
  Serious: No
  Sender: AMPHASTAR
  Company Number: JP-Amphastar Pharmaceuticals, Inc.-2172964

PATIENT

DRUGS (8)
  1. BAQSIMI [Suspect]
     Active Substance: GLUCAGON
     Indication: Hypoglycaemia
     Dates: start: 20250202, end: 20250202
  2. DIPYRIDAMOLE [Concomitant]
     Active Substance: DIPYRIDAMOLE
  3. TOFISOPAM [Concomitant]
     Active Substance: TOFISOPAM
  4. ETHYL LOFLAZEPATE [Concomitant]
     Active Substance: ETHYL LOFLAZEPATE
  5. PAXIL CR [Concomitant]
     Active Substance: PAROXETINE HYDROCHLORIDE
  6. TRESIBA PENFIL [Concomitant]
  7. HUMALOG [Concomitant]
     Active Substance: INSULIN LISPRO
  8. ROSUVASTATIN [Concomitant]
     Active Substance: ROSUVASTATIN

REACTIONS (3)
  - Drug dose omission by device [Unknown]
  - No adverse event [Unknown]
  - Device delivery system issue [Unknown]

NARRATIVE: CASE EVENT DATE: 20250202
